FAERS Safety Report 18849654 (Version 2)
Quarter: 2021Q3

REPORT INFORMATION
  Report Type: Spontaneous
  Country: FR (occurrence: FR)
  Receive Date: 20210204
  Receipt Date: 20210702
  Transmission Date: 20211014
  Serious: Yes (Hospitalization)
  Sender: FDA-Public Use
  Company Number: FR-ALLERGAN-2105037US

PATIENT
  Sex: Male
  Weight: 150 kg

DRUGS (1)
  1. BOTOX [Suspect]
     Active Substance: ONABOTULINUMTOXINA
     Indication: MUSCLE SPASTICITY
     Dosage: 250 UNITS, SINGLE
     Route: 030
     Dates: start: 20201218, end: 20201218

REACTIONS (3)
  - Hypotonia [Recovered/Resolved]
  - Muscle strength abnormal [Recovered/Resolved]
  - Injection site pain [Recovered/Resolved]

NARRATIVE: CASE EVENT DATE: 20201218
